FAERS Safety Report 25099033 (Version 1)
Quarter: 2025Q1

REPORT INFORMATION
  Report Type: Spontaneous
  Country: EG (occurrence: EG)
  Receive Date: 20250320
  Receipt Date: 20250320
  Transmission Date: 20250409
  Serious: Yes (Other)
  Sender: HIKMA
  Company Number: EG-HIKMA PHARMACEUTICALS-EG-H14001-25-02463

PATIENT

DRUGS (4)
  1. CARBOPLATIN [Suspect]
     Active Substance: CARBOPLATIN
     Indication: Transitional cell carcinoma metastatic
     Dosage: 150 MILLIGRAM
     Route: 042
     Dates: start: 20241109
  2. CARBOPLATIN [Suspect]
     Active Substance: CARBOPLATIN
     Dosage: 150 MILLIGRAM
     Route: 042
     Dates: start: 20241123
  3. CARBOPLATIN [Suspect]
     Active Substance: CARBOPLATIN
     Dosage: 150 MILLIGRAM
     Route: 042
     Dates: start: 20241207, end: 202412
  4. GEMCITABINE [Concomitant]
     Active Substance: GEMCITABINE
     Indication: Product used for unknown indication
     Route: 065

REACTIONS (2)
  - Tachycardia [Recovered/Resolved with Sequelae]
  - Hypertension [Recovered/Resolved with Sequelae]

NARRATIVE: CASE EVENT DATE: 20241109
